FAERS Safety Report 12527550 (Version 1)
Quarter: 2016Q3

REPORT INFORMATION
  Report Type: Report from Study
  Country: PT (occurrence: PT)
  Receive Date: 20160705
  Receipt Date: 20160705
  Transmission Date: 20161109
  Serious: Yes (Other)
  Sender: FDA-Public Use
  Company Number: PT-ROCHE-1785581

PATIENT
  Age: 41 Year
  Sex: Female

DRUGS (1)
  1. ROACTEMRA [Suspect]
     Active Substance: TOCILIZUMAB
     Indication: RHEUMATOID ARTHRITIS
     Route: 058
     Dates: start: 20160606

REACTIONS (10)
  - Dysphagia [Not Recovered/Not Resolved]
  - Oropharyngeal pain [Not Recovered/Not Resolved]
  - Dysstasia [Unknown]
  - Throat irritation [Not Recovered/Not Resolved]
  - Feeling hot [Not Recovered/Not Resolved]
  - Oropharyngeal pain [Unknown]
  - Arthralgia [Unknown]
  - Drug dose omission [Unknown]
  - Speech disorder [Unknown]
  - Arthralgia [Unknown]

NARRATIVE: CASE EVENT DATE: 20160607
